FAERS Safety Report 24833295 (Version 2)
Quarter: 2025Q1

REPORT INFORMATION
  Report Type: Spontaneous
  Country: FR (occurrence: FR)
  Receive Date: 20250111
  Receipt Date: 20250224
  Transmission Date: 20250409
  Serious: Yes (Other)
  Sender: AUROBINDO
  Company Number: FR-AFSSAPS-BS2024000911

PATIENT
  Age: 50 Year
  Sex: Female

DRUGS (8)
  1. KETOPROFEN [Suspect]
     Active Substance: KETOPROFEN
     Indication: Mesotherapy
     Route: 058
     Dates: start: 20241126, end: 20241126
  2. KETOPROFEN [Suspect]
     Active Substance: KETOPROFEN
     Route: 058
     Dates: start: 20241202, end: 20241202
  3. LIDOCAINE [Suspect]
     Active Substance: LIDOCAINE
     Indication: Mesotherapy
     Route: 058
     Dates: start: 20241126, end: 20241126
  4. LIDOCAINE [Suspect]
     Active Substance: LIDOCAINE
     Route: 058
     Dates: start: 20241202, end: 20241202
  5. COMIRNATY (TOZINAMERAN) [Suspect]
     Active Substance: TOZINAMERAN
     Indication: COVID-19 immunisation
     Route: 030
     Dates: start: 20241129, end: 20241129
  6. BETAMETHASONE DIPROPIONATE\BETAMETHASONE SODIUM PHOSPHATE [Suspect]
     Active Substance: BETAMETHASONE DIPROPIONATE\BETAMETHASONE SODIUM PHOSPHATE
     Indication: Joint injection
     Route: 014
     Dates: start: 20241129, end: 20241129
  7. ALPHA-TOCOPHEROL [Suspect]
     Active Substance: .ALPHA.-TOCOPHEROL
     Indication: Product used for unknown indication
     Route: 058
     Dates: start: 20241126, end: 20241126
  8. ALPHA-TOCOPHEROL [Suspect]
     Active Substance: .ALPHA.-TOCOPHEROL
     Route: 058
     Dates: start: 20241202, end: 20241202

REACTIONS (2)
  - Visual acuity reduced [Recovering/Resolving]
  - Off label use [Unknown]

NARRATIVE: CASE EVENT DATE: 20241126
